FAERS Safety Report 10040652 (Version 1)
Quarter: 2014Q1

REPORT INFORMATION
  Report Type: Spontaneous
  Country: US (occurrence: None)
  Receive Date: 20140326
  Receipt Date: 20140326
  Transmission Date: 20141002
  Serious: Yes (Life-Threatening)
  Sender: FDA-Public Use
  Company Number: None

PATIENT
  Age: 63 Year
  Sex: Male

DRUGS (1)
  1. TESTOSTERONE 1ML PERRIGO [Suspect]
     Indication: BLOOD TESTOSTERONE DECREASED
     Dosage: 1ML, ONCE EVERY 3 WEEKS, INTO THE MUSCLE?
     Dates: start: 20130410, end: 20130807

REACTIONS (1)
  - Polycythaemia vera [None]
